FAERS Safety Report 8696637 (Version 3)
Quarter: 2012Q4

REPORT INFORMATION
  Report Type: 
  Country: US (occurrence: US)
  Receive Date: 20120801
  Receipt Date: 20121025
  Transmission Date: 20130627
  Serious: Yes (Other)
  Sender: FDA-Public Use
  Company Number: US-NOVOPROD-356773

PATIENT
  Age: 14 Year
  Sex: Male
  Weight: 39.46 kg

DRUGS (1)
  1. NORDITROPIN FLEXPRO 10 MG/ML [Suspect]
     Indication: NOONAN SYNDROME
     Dosage: 0.6 mg, qd
     Route: 058
     Dates: start: 20111228, end: 20120625

REACTIONS (2)
  - Astrocytoma, low grade [Not Recovered/Not Resolved]
  - Condition aggravated [Not Recovered/Not Resolved]
